FAERS Safety Report 7130227-X (Version None)
Quarter: 2010Q4

REPORT INFORMATION
  Report Type: 
  Country: None (occurrence: None)
  Receive Date: 20101201
  Receipt Date: 20101124
  Transmission Date: 20110411
  Serious: Yes (Hospitalization, Other)
  Sender: FDA-Public Use
  Company Number: US-JNJFOC-20100804720

PATIENT
  Sex: Female

DRUGS (2)
  1. LEVAQUIN [Suspect]
     Indication: WHITE BLOOD CELL COUNT INCREASED
     Route: 048
  2. LEVAQUIN [Suspect]
     Route: 042

REACTIONS (4)
  - EPICONDYLITIS [None]
  - PERIARTHRITIS [None]
  - ROTATOR CUFF SYNDROME [None]
  - TENDON RUPTURE [None]
